FAERS Safety Report 8318987-3 (Version None)
Quarter: 2012Q2

REPORT INFORMATION
  Report Type: 
  Country: None (occurrence: None)
  Receive Date: 20120427
  Receipt Date: 20120426
  Transmission Date: 20120825
  Serious: No
  Sender: FDA-Public Use
  Company Number: US-TEVA-335148USA

PATIENT
  Sex: Female

DRUGS (1)
  1. AZILECT [Suspect]
     Indication: PARKINSON'S DISEASE
     Route: 048
     Dates: start: 20120415

REACTIONS (4)
  - MUSCULOSKELETAL STIFFNESS [None]
  - INSOMNIA [None]
  - ARTHRALGIA [None]
  - HEADACHE [None]
